FAERS Safety Report 21978276 (Version 1)
Quarter: 2023Q1

REPORT INFORMATION
  Report Type: Spontaneous
  Country: US (occurrence: None)
  Receive Date: 20230209
  Receipt Date: 20230209
  Transmission Date: 20230417
  Serious: Yes (Disabling)
  Sender: FDA-Public Use
  Company Number: None

PATIENT
  Age: 31 Month
  Sex: Male
  Weight: 13.05 kg

DRUGS (2)
  1. DUPIXENT [Suspect]
     Active Substance: DUPILUMAB
     Indication: Steroid withdrawal syndrome
     Dosage: OTHER QUANTITY : 1 INJECTION(S);?OTHER FREQUENCY : EVERY 4 WEEKS;?
     Route: 030
     Dates: start: 20230104, end: 20230202
  2. DUPIXENT [Suspect]
     Active Substance: DUPILUMAB
     Indication: Asthma

REACTIONS (7)
  - Gait disturbance [None]
  - Injection related reaction [None]
  - Stiff leg syndrome [None]
  - Gait inability [None]
  - Dysstasia [None]
  - Crying [None]
  - Irritability [None]

NARRATIVE: CASE EVENT DATE: 20230208
